FAERS Safety Report 5797465-X (Version None)
Quarter: 2008Q2

REPORT INFORMATION
  Report Type: 
  Country: None (occurrence: None)
  Receive Date: 20080630
  Receipt Date: 20080617
  Transmission Date: 20081010
  Serious: Yes (Hospitalization)
  Sender: FDA-Public Use
  Company Number: 20085287

PATIENT
  Age: 24 Year
  Sex: Male

DRUGS (5)
  1. LIORESAL [Suspect]
     Indication: MUSCLE SPASTICITY
     Dosage: 100-120 MCG, DAILY, INTRATHECAL
     Route: 037
  2. NEURTIN [Concomitant]
  3. TYLENOL [Concomitant]
  4. SCOPOLAMINE [Concomitant]
  5. RANITIDINE HCL [Concomitant]

REACTIONS (17)
  - ATHETOSIS [None]
  - BACK DISORDER [None]
  - CATHETER RELATED INFECTION [None]
  - CELLULITIS [None]
  - DEVICE RELATED INFECTION [None]
  - GASTROENTERITIS VIRAL [None]
  - HYPERTONIA [None]
  - INCISION SITE COMPLICATION [None]
  - INCISION SITE HAEMORRHAGE [None]
  - INCISION SITE INFECTION [None]
  - MYOCLONUS [None]
  - NAUSEA [None]
  - PROCEDURAL SITE REACTION [None]
  - PURULENCE [None]
  - RESTLESSNESS [None]
  - SEROMA [None]
  - VOMITING [None]
